FAERS Safety Report 8536972 (Version 3)
Quarter: 2015Q1

REPORT INFORMATION
  Report Type: Spontaneous
  Country: US (occurrence: US)
  Receive Date: 20120430
  Receipt Date: 20150306
  Transmission Date: 20150721
  Serious: Yes (Disabling, Other)
  Sender: FDA-Public Use
  Company Number: US-MERCK-1204USA03757

PATIENT
  Sex: Male

DRUGS (3)
  1. PROSCAR [Suspect]
     Active Substance: FINASTERIDE
     Dosage: 1 PACKET
     Route: 048
     Dates: start: 20010702, end: 20020326
  2. PROPECIA [Suspect]
     Active Substance: FINASTERIDE
     Indication: ALOPECIA
     Dosage: 1 MG, UNK
     Route: 048
     Dates: start: 2001, end: 2011
  3. FINASTERIDE. [Suspect]
     Active Substance: FINASTERIDE
     Indication: ALOPECIA
     Dosage: 5 MG, UNK
     Route: 048
     Dates: start: 20060425, end: 2011

REACTIONS (24)
  - Anxiety [Not Recovered/Not Resolved]
  - Rotator cuff syndrome [Unknown]
  - Sexual dysfunction [Not Recovered/Not Resolved]
  - Libido decreased [Not Recovered/Not Resolved]
  - Semen volume decreased [Not Recovered/Not Resolved]
  - Cognitive disorder [Not Recovered/Not Resolved]
  - Epicondylitis [Unknown]
  - Shoulder arthroplasty [Unknown]
  - Hyperlipidaemia [Not Recovered/Not Resolved]
  - Erectile dysfunction [Not Recovered/Not Resolved]
  - Peyronie^s disease [Recovering/Resolving]
  - Panic attack [Unknown]
  - Blood cholesterol increased [Unknown]
  - Fatigue [Not Recovered/Not Resolved]
  - Hypogonadism [Not Recovered/Not Resolved]
  - Nasal septum deviation [Unknown]
  - Vitamin D decreased [Unknown]
  - Depression [Not Recovered/Not Resolved]
  - Drug administration error [Unknown]
  - Chronic sinusitis [Not Recovered/Not Resolved]
  - Bunion operation [Unknown]
  - Benign prostatic hyperplasia [Unknown]
  - Ejaculation disorder [Not Recovered/Not Resolved]
  - Tinnitus [Unknown]

NARRATIVE: CASE EVENT DATE: 2005
